FAERS Safety Report 26152411 (Version 1)
Quarter: 2025Q4

REPORT INFORMATION
  Report Type: Spontaneous
  Country: US (occurrence: US)
  Receive Date: 20251214
  Receipt Date: 20251214
  Transmission Date: 20260118
  Serious: Yes (Other)
  Sender: SANOFI AVENTIS
  Company Number: US-ROCHE-501307

PATIENT
  Age: 66 Year
  Sex: Female

DRUGS (7)
  1. RIFAMPIN [Suspect]
     Active Substance: RIFAMPIN
     Indication: Tuberculosis
     Dosage: 600 MG, QD
     Route: 048
     Dates: start: 20070520
  2. COREG [Suspect]
     Active Substance: CARVEDILOL
     Indication: Hypertension
     Dosage: 50 MG, QD (25MG TWICE)
     Route: 048
     Dates: start: 200705
  3. MIDODRINE [Concomitant]
     Active Substance: MIDODRINE
     Dosage: UNK
  4. INH [Concomitant]
     Active Substance: ISONIAZID
  5. ASPIRIN [Concomitant]
     Active Substance: ASPIRIN
     Dosage: UNK
  6. LASIX [Concomitant]
     Active Substance: FUROSEMIDE
  7. ALLEGRA [Concomitant]
     Active Substance: FEXOFENADINE HYDROCHLORIDE

REACTIONS (4)
  - Haematocrit decreased [Unknown]
  - Haemoglobin decreased [Unknown]
  - Hepatic enzyme increased [Unknown]
  - Blood uric acid increased [Unknown]

NARRATIVE: CASE EVENT DATE: 20070530
